FAERS Safety Report 25691736 (Version 1)
Quarter: 2025Q3

REPORT INFORMATION
  Report Type: Report from Study
  Country: US (occurrence: US)
  Receive Date: 20250818
  Receipt Date: 20250818
  Transmission Date: 20251020
  Serious: Yes (Other)
  Sender: TAKEDA
  Company Number: US-TAKEDA-2025TUS072466

PATIENT
  Age: 72 Year
  Sex: Male

DRUGS (16)
  1. VORTIOXETINE [Suspect]
     Active Substance: VORTIOXETINE
     Indication: Product used for unknown indication
  2. HYDROCHLOROTHIAZIDE [Concomitant]
     Active Substance: HYDROCHLOROTHIAZIDE
  3. PRAVASTATIN SODIUM [Concomitant]
     Active Substance: PRAVASTATIN SODIUM
  4. CELECOXIB [Concomitant]
     Active Substance: CELECOXIB
  5. ALLOPURINOL [Concomitant]
     Active Substance: ALLOPURINOL
  6. MONTELUKAST [Concomitant]
     Active Substance: MONTELUKAST
  7. AMPHETAMINE [Concomitant]
     Active Substance: AMPHETAMINE
  8. CIALIS [Concomitant]
     Active Substance: TADALAFIL
  9. BREO ELLIPTA [Concomitant]
     Active Substance: FLUTICASONE FUROATE\VILANTEROL TRIFENATATE
  10. ALBUTEROL [Concomitant]
     Active Substance: ALBUTEROL
  11. MINERALS\VITAMINS [Concomitant]
     Active Substance: MINERALS\VITAMINS
  12. GABAPENTIN [Concomitant]
     Active Substance: GABAPENTIN
  13. NIFEDIPINE [Concomitant]
     Active Substance: NIFEDIPINE
  14. CETIRIZINE [Concomitant]
     Active Substance: CETIRIZINE HYDROCHLORIDE
  15. ORGOVYX [Concomitant]
     Active Substance: RELUGOLIX
  16. NEBIVOLOL [Concomitant]
     Active Substance: NEBIVOLOL

REACTIONS (2)
  - Femur fracture [Unknown]
  - Accident [Unknown]

NARRATIVE: CASE EVENT DATE: 20250404
